FAERS Safety Report 5002996-6 (Version None)
Quarter: 2006Q2

REPORT INFORMATION
  Report Type: 
  Country: None (occurrence: None)
  Receive Date: 20060516
  Receipt Date: 20050930
  Transmission Date: 20061013
  Serious: Yes (Hospitalization, Disabling, Other)
  Sender: FDA-Public Use
  Company Number: US-MERCK-0510USA01455

PATIENT
  Age: 53 Year
  Sex: Female
  Weight: 84 kg

DRUGS (9)
  1. VIOXX [Suspect]
     Indication: ARTHRALGIA
     Route: 048
     Dates: start: 19990501, end: 20040901
  2. RETIN-A [Concomitant]
     Route: 061
  3. FOSAMAX [Concomitant]
     Route: 065
  4. ALBUTEROL [Concomitant]
     Route: 055
  5. PROZAC [Concomitant]
     Route: 065
  6. PRILOSEC [Concomitant]
     Route: 065
  7. HYDROCHLOROTHIAZIDE [Concomitant]
     Route: 065
  8. METOPROLOL [Concomitant]
     Route: 065
  9. TRAZODONE HYDROCHLORIDE [Concomitant]
     Route: 065

REACTIONS (21)
  - ANAEMIA [None]
  - BLOOD PRESSURE INCREASED [None]
  - CARDIAC DISORDER [None]
  - CARDIOVASCULAR DISORDER [None]
  - CEREBROVASCULAR ACCIDENT [None]
  - DELIRIUM [None]
  - DEPRESSION [None]
  - FALL [None]
  - GASTROOESOPHAGEAL REFLUX DISEASE [None]
  - HELICOBACTER INFECTION [None]
  - HEPATOCELLULAR DAMAGE [None]
  - HYPERSENSITIVITY [None]
  - INTERVERTEBRAL DISC DEGENERATION [None]
  - LIVER DISORDER [None]
  - MULTI-ORGAN DISORDER [None]
  - MYOCARDIAL INFARCTION [None]
  - PAIN [None]
  - PULMONARY EMBOLISM [None]
  - RENAL DISORDER [None]
  - SPINAL COLUMN STENOSIS [None]
  - TRANSIENT ISCHAEMIC ATTACK [None]
